FAERS Safety Report 25369311 (Version 3)
Quarter: 2025Q2

REPORT INFORMATION
  Report Type: Spontaneous
  Country: US (occurrence: US)
  Receive Date: 20250528
  Receipt Date: 20250618
  Transmission Date: 20250716
  Serious: Yes (Other)
  Sender: ABBVIE
  Company Number: US-ABBVIE-6297180

PATIENT
  Age: 73 Year
  Sex: Female
  Weight: 83 kg

DRUGS (6)
  1. SYNTHROID [Suspect]
     Active Substance: LEVOTHYROXINE SODIUM
     Indication: Hypothyroidism
     Dosage: FORM STRENGTH: 100 MICROGRAM
     Route: 048
     Dates: start: 201102
  2. GABAPENTIN [Concomitant]
     Active Substance: GABAPENTIN
     Indication: Musculoskeletal disorder
  3. TRAMADOL [Concomitant]
     Active Substance: TRAMADOL
     Indication: Pain
  4. VITAMIN D [Concomitant]
     Active Substance: VITAMIN D NOS
     Indication: Vitamin supplementation
  5. LISINOPRIL [Concomitant]
     Active Substance: LISINOPRIL
     Indication: Blood pressure measurement
  6. BACLOFEN [Concomitant]
     Active Substance: BACLOFEN
     Indication: Arthritis

REACTIONS (5)
  - Neck surgery [Unknown]
  - Weight decreased [Unknown]
  - Food poisoning [Recovered/Resolved]
  - Device breakage [Recovered/Resolved]
  - Laboratory test abnormal [Unknown]

NARRATIVE: CASE EVENT DATE: 20250501
